FAERS Safety Report 23125002 (Version 2)
Quarter: 2024Q2

REPORT INFORMATION
  Report Type: Report from Study
  Country: US (occurrence: US)
  Receive Date: 20231030
  Receipt Date: 20240503
  Transmission Date: 20240716
  Serious: Yes (Life-Threatening, Hospitalization, Other)
  Sender: FDA-Public Use
  Company Number: US-ARGENX-2022-ARGX-US002508AA

PATIENT

DRUGS (1)
  1. VYVGART [Suspect]
     Active Substance: EFGARTIGIMOD ALFA-FCAB
     Indication: Myasthenia gravis
     Dosage: 10 MG/KG
     Route: 042

REACTIONS (7)
  - Morganella infection [Unknown]
  - Respiratory failure [Unknown]
  - Myocardial infarction [Unknown]
  - Septic shock [Recovering/Resolving]
  - Cardiac failure [Recovering/Resolving]
  - Back pain [Recovering/Resolving]
  - Dyspnoea [Unknown]
